FAERS Safety Report 8019614-5 (Version None)
Quarter: 2012Q1

REPORT INFORMATION
  Report Type: 
  Country: None (occurrence: None)
  Receive Date: 20120103
  Receipt Date: 20111221
  Transmission Date: 20120608
  Serious: Yes (Hospitalization)
  Sender: FDA-Public Use
  Company Number: US-GLAXOSMITHKLINE-A0922075A

PATIENT
  Age: 80 Year
  Sex: Male
  Weight: 118.2 kg

DRUGS (10)
  1. AVANDIA [Suspect]
     Indication: DIABETES MELLITUS
     Dosage: 4MG PER DAY
     Route: 048
  2. MONOPRIL [Concomitant]
  3. PROSCAR [Concomitant]
  4. PRILOSEC [Concomitant]
  5. TRICOR [Concomitant]
  6. ZOCOR [Concomitant]
  7. HYZAAR [Concomitant]
  8. CYMBALTA [Concomitant]
  9. METFORMIN HCL [Concomitant]
  10. NORVASC [Concomitant]

REACTIONS (5)
  - CARDIAC FAILURE CONGESTIVE [None]
  - DIZZINESS [None]
  - MYOCARDIAL INFARCTION [None]
  - CARDIAC PACEMAKER INSERTION [None]
  - AORTIC VALVE STENOSIS [None]
